FAERS Safety Report 7904957-3 (Version None)
Quarter: 2011Q4

REPORT INFORMATION
  Report Type: 
  Country: None (occurrence: None)
  Receive Date: 20111109
  Receipt Date: 20111101
  Transmission Date: 20120403
  Serious: Yes (Disabling, Other)
  Sender: FDA-Public Use
  Company Number: PHHY2011MX097563

PATIENT
  Sex: Female

DRUGS (2)
  1. EXFORGE [Suspect]
     Indication: HYPERTENSION
     Dosage: 1 DF, (160/10MG) DAILY
     Dates: start: 20071101, end: 20111001
  2. LASIX [Concomitant]
     Dosage: 2 DF, DAILY

REACTIONS (3)
  - SPINAL DISORDER [None]
  - BLOOD PRESSURE INCREASED [None]
  - ABASIA [None]
